FAERS Safety Report 9266546 (Version 1)
Quarter: 2013Q2

REPORT INFORMATION
  Report Type: Report from Study
  Country: ZA (occurrence: ZA)
  Receive Date: 20130502
  Receipt Date: 20130502
  Transmission Date: 20140414
  Serious: Yes (Death)
  Sender: FDA-Public Use
  Company Number: ZA-ROCHE-1220415

PATIENT
  Sex: Male

DRUGS (4)
  1. MIRCERA [Suspect]
     Indication: PRODUCT USED FOR UNKNOWN INDICATION
     Route: 058
     Dates: start: 20100630
  2. MIRCERA [Suspect]
     Dosage: DOSE REDUCED
     Route: 058
     Dates: start: 201011
  3. MIRCERA [Suspect]
     Dosage: DOSE REDUCED
     Route: 058
     Dates: start: 201107
  4. MIRCERA [Suspect]
     Dosage: DOSE REDUCED
     Route: 058
     Dates: start: 201111

REACTIONS (1)
  - Myocardial infarction [Fatal]
